FAERS Safety Report 6272096-6 (Version None)
Quarter: 2009Q3

REPORT INFORMATION
  Report Type: 
  Country: None (occurrence: None)
  Receive Date: 20090717
  Receipt Date: 20090708
  Transmission Date: 20100115
  Serious: Yes (Life-Threatening)
  Sender: FDA-Public Use
  Company Number: B0582800A

PATIENT
  Sex: Male

DRUGS (5)
  1. NIMBEX [Suspect]
     Route: 042
     Dates: start: 20080911, end: 20080911
  2. ZINNAT INJECTABLE [Suspect]
     Route: 042
     Dates: start: 20080911, end: 20080911
  3. SUFENTA PRESERVATIVE FREE [Suspect]
     Route: 042
     Dates: start: 20080911, end: 20080911
  4. ETOMIDATE [Suspect]
     Route: 042
     Dates: start: 20080911, end: 20080911
  5. DIPRIVAN [Suspect]
     Route: 042
     Dates: start: 20080911, end: 20080911

REACTIONS (3)
  - ANAPHYLACTIC SHOCK [None]
  - BLOOD PRESSURE DECREASED [None]
  - HAEMODYNAMIC INSTABILITY [None]
